FAERS Safety Report 5151751-5 (Version None)
Quarter: 2006Q4

REPORT INFORMATION
  Report Type: 
  Country: None (occurrence: None)
  Receive Date: 20061115
  Receipt Date: 20061106
  Transmission Date: 20070319
  Serious: Yes (Hospitalization)
  Sender: FDA-Public Use
  Company Number: FR-NOVOPROD-258481

PATIENT
  Age: 76 Year
  Sex: Female
  Weight: 70 kg

DRUGS (5)
  1. NOVORAPID FLEXPEN [Suspect]
  2. NOVOLOG MIX 70/30 [Suspect]
     Indication: INSULIN-REQUIRING TYPE II DIABETES MELLITUS
  3. ATARAX                             /00058401/ [Concomitant]
     Dosage: 100 MG, QD
     Route: 048
  4. LEVOTHYROXINE SODIUM [Concomitant]
     Dosage: 150 NG, QD
     Route: 048
  5. ACITRETIN [Concomitant]

REACTIONS (5)
  - CHOLESTASIS [None]
  - DIABETES MELLITUS INADEQUATE CONTROL [None]
  - PNEUMONIA [None]
  - PSORIASIS [None]
  - RASH [None]
